FAERS Safety Report 4433455-7 (Version None)
Quarter: 2004Q3

REPORT INFORMATION
  Report Type: 
  Country: None (occurrence: None)
  Receive Date: 20040825
  Receipt Date: 20040825
  Transmission Date: 20050211
  Serious: Yes (Hospitalization)
  Sender: FDA-Public Use
  Company Number: None

PATIENT
  Sex: Female

DRUGS (13)
  1. METOPROLOL [Suspect]
     Indication: HYPERTENSION
     Dosage: 25 MG  BID  ORAL
     Route: 048
     Dates: start: 20040610, end: 20040719
  2. NORTRIPTYLINE HCL [Concomitant]
  3. DOCUSATE [Concomitant]
  4. PREDNISONE [Concomitant]
  5. BACLOFEN [Concomitant]
  6. MILK OF MAGNESIA TAB [Concomitant]
  7. PENTOXIFYLLINE [Concomitant]
  8. CALCIUM CARBONATE [Concomitant]
  9. MULTI-VITAMINS [Concomitant]
  10. ALENDRONATE SODIUM [Concomitant]
  11. FLUOXETINE [Concomitant]
  12. RANITIDINE [Concomitant]
  13. ENOXAPARIN SODIUM [Concomitant]

REACTIONS (3)
  - HYPOPERFUSION [None]
  - PERIPHERAL MOTOR NEUROPATHY [None]
  - RAYNAUD'S PHENOMENON [None]
